FAERS Safety Report 16171350 (Version 1)
Quarter: 2019Q2

REPORT INFORMATION
  Report Type: Spontaneous
  Country: US (occurrence: US)
  Receive Date: 20190408
  Receipt Date: 20190408
  Transmission Date: 20190711
  Serious: No
  Sender: FDA-Public Use
  Company Number: US-TARO-2019TAR00045

PATIENT
  Sex: Male
  Weight: 81.63 kg

DRUGS (2)
  1. FLUOROURACIL TOPICAL CREAM USP 5% [Suspect]
     Active Substance: FLUOROURACIL
     Indication: SOLAR LENTIGO
     Dosage: UNK UNK, 2X/DAY MORNING AND NIGHT
     Route: 061
  2. UNSPECIFIED SUNSCREEN [Concomitant]
     Active Substance: UNSPECIFIED INGREDIENT

REACTIONS (5)
  - Product administration error [Unknown]
  - Insomnia [Unknown]
  - Application site erythema [Unknown]
  - Application site discomfort [Unknown]
  - Application site pain [Unknown]
